FAERS Safety Report 6169229-9 (Version None)
Quarter: 2009Q2

REPORT INFORMATION
  Report Type: 
  Country: None (occurrence: None)
  Receive Date: 20090424
  Receipt Date: 20090416
  Transmission Date: 20091009
  Serious: Yes (Hospitalization)
  Sender: FDA-Public Use
  Company Number: A0779145A

PATIENT
  Age: 60 Year
  Sex: Male

DRUGS (13)
  1. CALCIUM CARBONATE (CALCIUM CARBONATE) (FORMULATION UNKNOWN) [Suspect]
     Indication: GASTROOESOPHAGEAL REFLUX DISEASE
  2. CALCIUM CARBONATE (CALCIUM CARBONATE) (FORMULATION UNKNOWN) [Suspect]
     Dosage: UNK UNK ORAL
     Route: 048
  3. CALCIUM RICH ROLAIDS (CALCIUM RICH ROLAIDS) (FORMULATION UNKNOWN) [Suspect]
     Indication: GASTROOESOPHAGEAL REFLUX DISEASE
     Dosage: ORAL
     Route: 048
  4. PANTOPRAZOLE SODIUM [Concomitant]
  5. THYROXIDE SODIUM [Concomitant]
  6. METFORMIN HYDROCHLORIDE [Concomitant]
  7. LOSARTAN POTASSIUM [Concomitant]
  8. DULOXETINE [Concomitant]
  9. GLIMEPIRIDE [Concomitant]
  10. PREGABALIN [Concomitant]
  11. SIMVASTATIN [Concomitant]
  12. GELUSIL [Concomitant]
  13. ANTACID TAB [Concomitant]

REACTIONS (6)
  - ABNORMAL BEHAVIOUR [None]
  - AGITATION [None]
  - BLOOD CALCIUM INCREASED [None]
  - HALLUCINATION [None]
  - IMPAIRED DRIVING ABILITY [None]
  - MULTIPLE DRUG OVERDOSE [None]
